FAERS Safety Report 7328543-1 (Version None)
Quarter: 2011Q1

REPORT INFORMATION
  Report Type: 
  Country: None (occurrence: None)
  Receive Date: 20110218
  Receipt Date: 20110204
  Transmission Date: 20110831
  Serious: Yes (Other)
  Sender: FDA-Public Use
  Company Number: 1000018813

PATIENT
  Age: 54 Year
  Sex: Female

DRUGS (2)
  1. TERCIAN (CYAMEMAZINE) (CYAMEMAZINE) [Concomitant]
  2. ESCITALOPRAM OXALATE [Suspect]
     Indication: MAJOR DEPRESSION
     Dosage: 10 MG (10 MG, 1 IN 1 D), ORAL; 20 MG (20 MG, 1 IN 1 D), ORAL
     Route: 048

REACTIONS (1)
  - CLONUS [None]
